FAERS Safety Report 7324350-4 (Version None)
Quarter: 2011Q1

REPORT INFORMATION
  Report Type: 
  Country: None (occurrence: None)
  Receive Date: 20110301
  Receipt Date: 20110224
  Transmission Date: 20110831
  Serious: Yes (Other)
  Sender: FDA-Public Use
  Company Number: US-ABBOTT-11P-163-0707735-00

PATIENT
  Sex: Female

DRUGS (3)
  1. HUMIRA [Suspect]
     Indication: PSORIASIS
     Dates: start: 20100101, end: 20101101
  2. METFORMIN [Concomitant]
     Indication: DIABETES MELLITUS
     Dates: start: 20110101
  3. LOSARTAN POTASSIUM AND HYDROCHLOROTHIAZIDE [Concomitant]
     Indication: HYPERTENSION
     Dosage: 100/25MG DAILY

REACTIONS (5)
  - CATARACT OPERATION [None]
  - GALLBLADDER DISORDER [None]
  - ABDOMINAL PAIN [None]
  - VISION BLURRED [None]
  - NAUSEA [None]
